FAERS Safety Report 6803137-2 (Version None)
Quarter: 2010Q2

REPORT INFORMATION
  Report Type: 
  Country: None (occurrence: None)
  Receive Date: 20100628
  Receipt Date: 20100623
  Transmission Date: 20101027
  Serious: Yes (Other)
  Sender: FDA-Public Use
  Company Number: A0866783A

PATIENT
  Age: 78 Year
  Sex: Female

DRUGS (10)
  1. LOVAZA [Suspect]
     Dosage: 1CAP PER DAY
     Route: 048
  2. ZANTAC [Concomitant]
  3. TYLENOL [Concomitant]
  4. THYROID MEDICATION [Concomitant]
  5. WATER PILL [Concomitant]
  6. VITAMINS [Concomitant]
  7. POTASSIUM [Concomitant]
  8. ZOFRAN [Concomitant]
  9. PROTONIX [Concomitant]
  10. CLARITIN [Concomitant]

REACTIONS (1)
  - GOUT [None]
